FAERS Safety Report 20141624 (Version 2)
Quarter: 2022Q1

REPORT INFORMATION
  Report Type: Spontaneous
  Country: NL (occurrence: NL)
  Receive Date: 20211202
  Receipt Date: 20220330
  Transmission Date: 20220424
  Serious: Yes (Hospitalization)
  Sender: FDA-Public Use
  Company Number: NL-PFIZER INC-202101352798

PATIENT
  Age: 2 Year
  Sex: Male

DRUGS (1)
  1. PREGABALIN [Suspect]
     Active Substance: PREGABALIN
     Indication: Product used for unknown indication
     Dosage: 600 MG (DOSE (MGKG-1)/50.0)
     Route: 065

REACTIONS (4)
  - Somnolence [Unknown]
  - Accidental overdose [Unknown]
  - Restlessness [Unknown]
  - Product use issue [Unknown]
